FAERS Safety Report 9796313 (Version 3)
Quarter: 2014Q1

REPORT INFORMATION
  Report Type: Spontaneous
  Country: JP (occurrence: JP)
  Receive Date: 20140103
  Receipt Date: 20140311
  Transmission Date: 20141002
  Serious: Yes (Other)
  Sender: FDA-Public Use
  Company Number: JP-UCBSA-107377

PATIENT
  Age: 36 Year
  Sex: Female

DRUGS (7)
  1. E KEPPRA [Suspect]
     Indication: EPILEPSY
     Route: 048
  2. E KEPPRA [Suspect]
     Indication: EPILEPSY
     Route: 048
  3. E KEPPRA [Suspect]
     Indication: EPILEPSY
     Route: 048
  4. TOPIRAMATE [Concomitant]
     Route: 048
  5. SODIUM VALPROATE [Concomitant]
     Route: 048
  6. CARBAMAZEPINE [Concomitant]
     Route: 048
  7. DIAMOX [Concomitant]
     Route: 048

REACTIONS (6)
  - Psychiatric symptom [Recovering/Resolving]
  - Schizophrenia [Recovering/Resolving]
  - Epilepsy [Unknown]
  - Overdose [Not Recovered/Not Resolved]
  - Drug level increased [Unknown]
  - Weight increased [Unknown]
